FAERS Safety Report 15956455 (Version 1)
Quarter: 2019Q1

REPORT INFORMATION
  Report Type: Spontaneous
  Country: US (occurrence: US)
  Receive Date: 20190213
  Receipt Date: 20190213
  Transmission Date: 20190417
  Serious: No
  Sender: FDA-Public Use
  Company Number: US-GLAXOSMITHKLINE-US2019019194

PATIENT
  Sex: Female

DRUGS (1)
  1. MUPIROCIN OINTMENT [Suspect]
     Active Substance: MUPIROCIN
     Indication: SKIN ULCER
     Route: 061

REACTIONS (3)
  - Wound drainage [Unknown]
  - Drug effect delayed [Not Recovered/Not Resolved]
  - Product substitution issue [Not Recovered/Not Resolved]
